FAERS Safety Report 16942472 (Version 1)
Quarter: 2019Q4

REPORT INFORMATION
  Report Type: Spontaneous
  Country: US (occurrence: US)
  Receive Date: 20191021
  Receipt Date: 20191021
  Transmission Date: 20200122
  Serious: No
  Sender: FDA-Public Use
  Company Number: US-SA-2019SA283852

PATIENT
  Age: 30 Year
  Sex: Female

DRUGS (11)
  1. VYVANSE [Concomitant]
     Active Substance: LISDEXAMFETAMINE DIMESYLATE
  2. AMPHETAMINE [Concomitant]
     Active Substance: AMPHETAMINE
  3. FLUOCIN [FLUOCINOLONE ACETONIDE] [Concomitant]
     Active Substance: FLUOCINOLONE ACETONIDE
  4. TACROLIMUS. [Concomitant]
     Active Substance: TACROLIMUS
  5. ARIPIPRAZOLE. [Concomitant]
     Active Substance: ARIPIPRAZOLE
  6. LOTEMAX [Concomitant]
     Active Substance: LOTEPREDNOL ETABONATE
  7. KETOCONAZOLE. [Concomitant]
     Active Substance: KETOCONAZOLE
  8. DUPIXENT [Suspect]
     Active Substance: DUPILUMAB
     Indication: DERMATITIS ATOPIC
     Dosage: 300 MG, QOW
     Route: 058
     Dates: start: 20190405, end: 2019
  9. LOTEPREDNOL [Concomitant]
     Active Substance: LOTEPREDNOL
  10. VENTOLIN [Concomitant]
     Active Substance: ALBUTEROL SULFATE
  11. LAMOTRIGINE. [Concomitant]
     Active Substance: LAMOTRIGINE

REACTIONS (3)
  - Conjunctivitis [Not Recovered/Not Resolved]
  - Rash [Not Recovered/Not Resolved]
  - Dermatitis atopic [Not Recovered/Not Resolved]
